FAERS Safety Report 18034252 (Version 1)
Quarter: 2020Q3

REPORT INFORMATION
  Report Type: Spontaneous
  Country: IT (occurrence: IT)
  Receive Date: 20200716
  Receipt Date: 20200716
  Transmission Date: 20201103
  Serious: Yes (Life-Threatening)
  Sender: FDA-Public Use
  Company Number: NVSC2020IT170670

PATIENT
  Age: 5 Decade
  Sex: Female

DRUGS (3)
  1. CYCLOSPORINE. [Suspect]
     Active Substance: CYCLOSPORINE
     Indication: STILL^S DISEASE
     Dosage: UNK HIGH?DOSAGE
     Route: 065
     Dates: start: 2015, end: 2017
  2. CORTISONE [Suspect]
     Active Substance: CORTISONE
     Indication: STILL^S DISEASE
     Dosage: HIGH DOSAGE
     Route: 065
  3. ANAKINRA [Suspect]
     Active Substance: ANAKINRA
     Indication: STILL^S DISEASE
     Dosage: UNK
     Route: 065

REACTIONS (2)
  - Herpes zoster [Unknown]
  - Drug ineffective [Unknown]
